FAERS Safety Report 24609851 (Version 1)
Quarter: 2024Q4

REPORT INFORMATION
  Report Type: Spontaneous
  Country: US (occurrence: US)
  Receive Date: 20241112
  Receipt Date: 20241112
  Transmission Date: 20250115
  Serious: No
  Sender: SANOFI AVENTIS
  Company Number: US-SA-2024SA321435

PATIENT
  Age: 20 Year
  Sex: Female

DRUGS (2)
  1. DUPIXENT [Suspect]
     Active Substance: DUPILUMAB
     Indication: Psoriasis
     Dosage: 300 MG, QOW
     Route: 058
     Dates: start: 202407
  2. OTEZLA [Concomitant]
     Active Substance: APREMILAST
     Dosage: UNK

REACTIONS (1)
  - Product use in unapproved indication [Unknown]

NARRATIVE: CASE EVENT DATE: 20240701
